FAERS Safety Report 25170253 (Version 1)
Quarter: 2025Q2

REPORT INFORMATION
  Report Type: Spontaneous
  Country: JP (occurrence: JP)
  Receive Date: 20250407
  Receipt Date: 20250407
  Transmission Date: 20250717
  Serious: Yes (Life-Threatening, Hospitalization)
  Sender: ASTELLAS
  Company Number: JP-ASTELLAS-2025-AER-018972

PATIENT
  Age: 56 Year
  Sex: Male

DRUGS (4)
  1. TACROLIMUS [Suspect]
     Active Substance: TACROLIMUS
     Indication: Interstitial lung disease
     Route: 065
  2. PREDNISOLONE [Suspect]
     Active Substance: PREDNISOLONE
     Indication: Interstitial lung disease
     Route: 065
  3. PREDNISOLONE [Suspect]
     Active Substance: PREDNISOLONE
     Route: 065
  4. ACYCLOVIR [Concomitant]
     Active Substance: ACYCLOVIR
     Indication: Herpes simplex meningoencephalitis
     Route: 065

REACTIONS (4)
  - Haemophagocytic lymphohistiocytosis [Recovering/Resolving]
  - Multiple organ dysfunction syndrome [Recovering/Resolving]
  - Disseminated herpes simplex [Recovering/Resolving]
  - Herpes simplex meningoencephalitis [Recovering/Resolving]
